FAERS Safety Report 7472203-3 (Version None)
Quarter: 2011Q2

REPORT INFORMATION
  Report Type: 
  Country: None (occurrence: None)
  Receive Date: 20110511
  Receipt Date: 20110301
  Transmission Date: 20111010
  Serious: No
  Sender: FDA-Public Use
  Company Number: A0917211A

PATIENT
  Age: 45 Year
  Sex: Female
  Weight: 80.5 kg

DRUGS (2)
  1. CAPECITABINE [Concomitant]
     Dosage: 1000MG TWICE PER DAY
     Route: 048
     Dates: start: 20110204, end: 20110214
  2. TYKERB [Suspect]
     Dosage: 1250MG PER DAY
     Route: 048
     Dates: start: 20110204, end: 20110215

REACTIONS (6)
  - HYPERSENSITIVITY [None]
  - DERMATITIS ALLERGIC [None]
  - RASH MACULO-PAPULAR [None]
  - PRURITUS [None]
  - URTICARIA [None]
  - RASH ERYTHEMATOUS [None]
